FAERS Safety Report 12903038 (Version 2)
Quarter: 2016Q4

REPORT INFORMATION
  Report Type: Report from Study
  Country: US (occurrence: US)
  Receive Date: 20161102
  Receipt Date: 20161227
  Transmission Date: 20170207
  Serious: Yes (Hospitalization, Other)
  Sender: FDA-Public Use
  Company Number: US-BAYER-2016-177943

PATIENT
  Age: 56 Year
  Sex: Female
  Weight: 59.86 kg

DRUGS (5)
  1. ADEMPAS [Suspect]
     Active Substance: RIOCIGUAT
     Indication: PULMONARY ARTERIAL HYPERTENSION
     Dosage: UNK
     Dates: start: 20160624
  2. ADEMPAS [Suspect]
     Active Substance: RIOCIGUAT
     Indication: PULMONARY ARTERIAL HYPERTENSION
     Dosage: 2 MG, TID
     Route: 048
  3. ADEMPAS [Suspect]
     Active Substance: RIOCIGUAT
     Indication: PULMONARY ARTERIAL HYPERTENSION
     Dosage: 2.5 MG, TID
     Route: 048
  4. ADEMPAS [Suspect]
     Active Substance: RIOCIGUAT
     Indication: PULMONARY ARTERIAL HYPERTENSION
     Dosage: 1.5 MG, TID
     Route: 048
  5. OPSUMIT [Concomitant]
     Active Substance: MACITENTAN
     Dosage: UNK

REACTIONS (18)
  - Phlebitis [Unknown]
  - Vomiting [Unknown]
  - Mass [Unknown]
  - Chills [Unknown]
  - Pain [Unknown]
  - Limb mass [Unknown]
  - Gastroenteritis viral [Unknown]
  - Clostridium difficile infection [Unknown]
  - Pyrexia [Unknown]
  - Dyspepsia [None]
  - Hospitalisation [None]
  - Nausea [Unknown]
  - Nodule [Unknown]
  - Rash macular [Unknown]
  - Staphylococcal infection [Unknown]
  - Diarrhoea [Unknown]
  - Abdominal pain upper [Unknown]
  - Skin disorder [Unknown]
